FAERS Safety Report 11164723 (Version 3)
Quarter: 2015Q3

REPORT INFORMATION
  Report Type: Spontaneous
  Country: IT (occurrence: IT)
  Receive Date: 20150604
  Receipt Date: 20150705
  Transmission Date: 20151125
  Serious: Yes (Other)
  Sender: FDA-Public Use
  Company Number: IT-TEVA-566959ACC

PATIENT
  Age: 60 Year
  Sex: Male
  Weight: 78 kg

DRUGS (3)
  1. AMOXICILLIN W/CLAVULANIC ACID [Suspect]
     Active Substance: AMOXICILLIN\CLAVULANIC ACID
     Indication: TOOTH EXTRACTION
     Dosage: 1 G TOTAL
     Route: 048
     Dates: start: 20150514, end: 20150514
  2. TACHIPIRINA - 1000 MG COMPRESSE [Concomitant]
     Indication: TOOTHACHE
     Dosage: 1000 MG
     Route: 048
     Dates: start: 20150513, end: 20150514
  3. TAPAZOLE - 5 MG COMPRESSE [Concomitant]
     Indication: HYPERTHYROIDISM
     Dosage: 5 MG
     Route: 048

REACTIONS (6)
  - Erythema [Recovered/Resolved]
  - Oedema [Recovered/Resolved]
  - Ocular hyperaemia [Recovered/Resolved]
  - Drug hypersensitivity [Recovered/Resolved]
  - Pruritus [Recovered/Resolved]
  - Tachycardia [Recovered/Resolved]

NARRATIVE: CASE EVENT DATE: 20150514
